FAERS Safety Report 9409699 (Version 3)
Quarter: 2013Q3

REPORT INFORMATION
  Report Type: Report from Study
  Country: IN (occurrence: IN)
  Receive Date: 20130719
  Receipt Date: 20130802
  Transmission Date: 20140515
  Serious: Yes (Hospitalization, Other)
  Sender: FDA-Public Use
  Company Number: PHHY2013IN076607

PATIENT
  Age: 76 Year
  Sex: Female

DRUGS (1)
  1. ACLASTA [Suspect]
     Indication: OSTEOPOROTIC FRACTURE
     Dosage: ONCE YEARLY
     Route: 042
     Dates: start: 20130228

REACTIONS (5)
  - Ulna fracture [Unknown]
  - Joint swelling [Unknown]
  - Arthralgia [Unknown]
  - Foot fracture [Recovered/Resolved]
  - Dyskinesia [Unknown]
